FAERS Safety Report 23235665 (Version 2)
Quarter: 2024Q1

REPORT INFORMATION
  Report Type: Spontaneous
  Country: US (occurrence: US)
  Receive Date: 20231128
  Receipt Date: 20240207
  Transmission Date: 20240410
  Serious: Yes (Other)
  Sender: FDA-Public Use
  Company Number: US-PFIZER INC-PV202300190767

PATIENT
  Age: 55 Year
  Sex: Female
  Weight: 97.506 kg

DRUGS (10)
  1. XELJANZ XR [Suspect]
     Active Substance: TOFACITINIB CITRATE
     Indication: Rheumatoid arthritis
     Dosage: UNK
     Dates: start: 2011, end: 202308
  2. HYDROCHLOROTHIAZIDE [Concomitant]
     Active Substance: HYDROCHLOROTHIAZIDE
     Indication: Hypertension
     Dosage: 25 MG, 1X/DAY
     Dates: start: 2022
  3. METFORMIN [Concomitant]
     Active Substance: METFORMIN HYDROCHLORIDE
     Indication: Diabetes mellitus
     Dosage: 500 MG, 2X/DAY (STARTED ABOUT A YEAR NOW, IT MIGHT BE TWO)
  4. SERTRALINE [Concomitant]
     Active Substance: SERTRALINE HYDROCHLORIDE
     Indication: Depression
     Dosage: 100 MG, 2X/DAY (TAKING SEVERAL YEARS)
  5. LOSARTAN [Concomitant]
     Active Substance: LOSARTAN
     Indication: Blood pressure measurement
     Dosage: 100 MG, 1X/DAY (STARTED ABOUT 2 YEARS)
  6. CARBAMAZEPINE [Concomitant]
     Active Substance: CARBAMAZEPINE
     Indication: Trigeminal neuralgia
     Dosage: 200 MG, 2X/DAY
  7. FOLIC ACID [Concomitant]
     Active Substance: FOLIC ACID
     Indication: Abdominal discomfort
     Dosage: 1 MG, 1X/DAY
  8. DOXYCYCLINE [Concomitant]
     Active Substance: DOXYCYCLINE
     Indication: Rosacea
     Dosage: 100 MG, 2X/DAY (BEEN TAKING SUMMER TIME)
  9. NAPROXEN [Concomitant]
     Active Substance: NAPROXEN
     Indication: Swelling
     Dosage: 375 MG, 2X/DAY
  10. POTASSIUM [Concomitant]
     Active Substance: POTASSIUM
     Indication: Restless legs syndrome
     Dosage: 10 MEQ (AT NIGHT) 9FAIRLY NEW WITHIN THE LAST 12 MONTHS)
     Dates: start: 2023

REACTIONS (2)
  - Thrombosis [Recovered/Resolved]
  - Pain [Unknown]

NARRATIVE: CASE EVENT DATE: 20200101
